FAERS Safety Report 15459169 (Version 1)
Quarter: 2018Q4

REPORT INFORMATION
  Report Type: Spontaneous
  Country: US (occurrence: US)
  Receive Date: 20181001
  Receipt Date: 20181001
  Transmission Date: 20190204
  Serious: Yes (Disabling)
  Sender: FDA-Public Use
  Company Number: None

PATIENT
  Age: 79 Year
  Sex: Female
  Weight: 77.85 kg

DRUGS (6)
  1. BENADRYL CHILDREN^S [Concomitant]
  2. THERATEARS [Concomitant]
     Active Substance: CARBOXYMETHYLCELLULOSE SODIUM
  3. ASPIRIN. [Concomitant]
     Active Substance: ASPIRIN
  4. SINULAIR  ASMANES TWISTHALER 220 MCG #60  CANES [Concomitant]
  5. BENADRYL HCI 25MG [Concomitant]
  6. PAREMYD [Suspect]
     Active Substance: HYDROXYAMPHETAMINE HYDROBROMIDE\TROPICAMIDE
     Indication: EYE DISORDER

REACTIONS (2)
  - Burning sensation [None]
  - Eye irritation [None]

NARRATIVE: CASE EVENT DATE: 20180927
